FAERS Safety Report 14354731 (Version 2)
Quarter: 2018Q1

REPORT INFORMATION
  Report Type: Spontaneous
  Country: DE (occurrence: DE)
  Receive Date: 20180105
  Receipt Date: 20180206
  Transmission Date: 20180509
  Serious: Yes (Hospitalization)
  Sender: FDA-Public Use
  Company Number: DE-AUROBINDO-AUR-APL-2018-000261

PATIENT
  Age: 48 Year
  Sex: Male

DRUGS (1)
  1. IBUPROFEN FILM-COATED TABLETS [Suspect]
     Active Substance: IBUPROFEN
     Indication: PAIN
     Dosage: 90 TABLETS ONCE WITH SUICIDE INTENTION
     Route: 065

REACTIONS (7)
  - Intentional overdose [Recovered/Resolved]
  - Circulatory collapse [Recovered/Resolved]
  - Hypotension [Recovered/Resolved]
  - Metabolic acidosis [Recovered/Resolved]
  - Tachycardia [Recovered/Resolved]
  - Acute kidney injury [Recovered/Resolved]
  - Somnolence [Recovered/Resolved]
